FAERS Safety Report 6406603-7 (Version None)
Quarter: 2009Q4

REPORT INFORMATION
  Report Type: 
  Country: None (occurrence: None)
  Receive Date: 20091014
  Receipt Date: 20091007
  Transmission Date: 20100525
  Serious: Yes (Death)
  Sender: FDA-Public Use
  Company Number: 09DE001215

PATIENT
  Age: 10 Month

DRUGS (2)
  1. VALPROIC ACID [Suspect]
     Indication: SPINAL MUSCULAR ATROPHY
     Dosage: 20 MG/KG, LIQUID, ORAL
     Route: 048
  2. UNKNOWN [Concomitant]

REACTIONS (1)
  - DEATH [None]
